FAERS Safety Report 10133812 (Version 1)
Quarter: 2014Q2

REPORT INFORMATION
  Report Type: Spontaneous
  Country: US (occurrence: US)
  Receive Date: 20140428
  Receipt Date: 20140428
  Transmission Date: 20141212
  Serious: No
  Sender: FDA-Public Use
  Company Number: US-BAYER-2014-061261

PATIENT
  Age: 72 Year
  Sex: Male
  Weight: 92.97 kg

DRUGS (3)
  1. ALEVE LIQUID GELS [Suspect]
     Dosage: 1 DF, UNK
     Route: 048
     Dates: start: 2014
  2. ALEVE TABLET [Suspect]
     Dosage: 1 DF, UNK
     Route: 048
     Dates: start: 201401
  3. TRAMADOL [Concomitant]

REACTIONS (2)
  - Drug ineffective [None]
  - Drug ineffective [None]
